FAERS Safety Report 12986299 (Version 9)
Quarter: 2019Q2

REPORT INFORMATION
  Report Type: Report from Study
  Country: PA (occurrence: PA)
  Receive Date: 20161130
  Receipt Date: 20190528
  Transmission Date: 20190711
  Serious: Yes (Other)
  Sender: FDA-Public Use
  Company Number: PHHY2016PA144258

PATIENT
  Sex: Female

DRUGS (1)
  1. GILENYA [Suspect]
     Active Substance: FINGOLIMOD HYDROCHLORIDE
     Indication: PRODUCT USED FOR UNKNOWN INDICATION
     Dosage: 0.5 MG, UNK
     Route: 065

REACTIONS (23)
  - Fall [Unknown]
  - Anxiety [Unknown]
  - Nausea [Unknown]
  - Migraine [Unknown]
  - Malaise [Unknown]
  - Eye disorder [Unknown]
  - Gait disturbance [Unknown]
  - Depressed mood [Unknown]
  - Nasopharyngitis [Unknown]
  - Stress [Unknown]
  - Vomiting [Unknown]
  - Depression [Unknown]
  - Emotional disorder [Unknown]
  - Muscular weakness [Recovering/Resolving]
  - Abdominal pain upper [Recovering/Resolving]
  - Skin lesion [Unknown]
  - Diplopia [Unknown]
  - Skin depigmentation [Unknown]
  - Headache [Unknown]
  - Retinal degeneration [Unknown]
  - Vision blurred [Recovering/Resolving]
  - Crying [Unknown]
  - Fatigue [Unknown]
